FAERS Safety Report 19295837 (Version 2)
Quarter: 2021Q3

REPORT INFORMATION
  Report Type: Spontaneous
  Country: US (occurrence: US)
  Receive Date: 20210524
  Receipt Date: 20210721
  Transmission Date: 20211014
  Serious: Yes (Hospitalization, Other)
  Sender: FDA-Public Use
  Company Number: US-TEVA-2021-US-1915770

PATIENT
  Age: 68 Year
  Sex: Male
  Weight: 75.36 kg

DRUGS (8)
  1. VALSARTAN W/HYDROCHLOROTHIAZIDE LUPIN [Suspect]
     Active Substance: HYDROCHLOROTHIAZIDE\VALSARTAN
     Indication: HYPERTENSION
     Dosage: 320/12.5 MG
     Route: 065
     Dates: start: 20150118, end: 20150418
  2. ASPIRIN. [Concomitant]
     Active Substance: ASPIRIN
     Route: 048
  3. VALSARTAN W/HYDROCHLOROTHIAZIDE PRINSTON [Suspect]
     Active Substance: HYDROCHLOROTHIAZIDE\VALSARTAN
     Indication: HYPERTENSION
     Dosage: 320/12.5 MG
     Route: 065
     Dates: start: 20160731, end: 20180822
  4. MULTIVITAMIN [Concomitant]
     Active Substance: VITAMINS
  5. VALSARTAN W/HYDROCHLOROTHIAZIDE TEVA [Suspect]
     Active Substance: HYDROCHLOROTHIAZIDE\VALSARTAN
     Indication: HYPERTENSION
     Route: 065
     Dates: start: 20170521, end: 20170819
  6. VALSARTAN W/HYDROCHLOROTHIAZIDE APOTEX [Suspect]
     Active Substance: HYDROCHLOROTHIAZIDE\VALSARTAN
     Indication: HYPERTENSION
     Dosage: 320/12.5 MG
     Route: 065
     Dates: start: 20150118, end: 20150418
  7. AMLODIPINE [Concomitant]
     Active Substance: AMLODIPINE BESYLATE
     Indication: HYPERTENSION
  8. PRAVASTATIN. [Concomitant]
     Active Substance: PRAVASTATIN
     Dosage: QHS
     Route: 048

REACTIONS (2)
  - Adenocarcinoma of colon [Not Recovered/Not Resolved]
  - Metastases to liver [Not Recovered/Not Resolved]
